FAERS Safety Report 6321621-5 (Version None)
Quarter: 2009Q3

REPORT INFORMATION
  Report Type: 
  Country: None (occurrence: None)
  Receive Date: 20090824
  Receipt Date: 20090818
  Transmission Date: 20100115
  Serious: Yes (Death, Other)
  Sender: FDA-Public Use
  Company Number: JP-BAYER-200912425BYL

PATIENT
  Age: 46 Year
  Sex: Male
  Weight: 71 kg

DRUGS (15)
  1. NEXAVAR [Suspect]
     Indication: HEPATIC CANCER STAGE IV
     Dosage: UNIT DOSE: 200 MG
     Route: 048
     Dates: start: 20090527, end: 20090602
  2. NEXAVAR [Suspect]
     Dosage: UNIT DOSE: 200 MG
     Route: 048
     Dates: start: 20090603, end: 20090705
  3. ZOMETA [Concomitant]
     Dosage: SINCE BEFORE ADMINISTRATION
     Route: 041
  4. BARACLUDE [Concomitant]
     Dosage: SINCE BEFORE ADMINISTRATION
     Route: 048
  5. URSO 250 [Concomitant]
     Dosage: SINCE BEFORE ADMINISTRATION
     Route: 048
  6. GLAKAY [Concomitant]
     Dosage: SINCE BEFORE ADMINISTRATION
     Route: 048
  7. LOXOPROFEN [Concomitant]
     Dosage: SINCE BEFORE ADMINISTRATION
     Route: 048
  8. MUCOSTA [Concomitant]
     Dosage: SINCE BEFORE ADMINISTRATION
     Route: 048
  9. TAKEPRON [Concomitant]
     Dosage: SINCE BEFORE ADMINISTRATION
     Route: 048
     Dates: end: 20090609
  10. PELTAZON [Concomitant]
     Dosage: SINCE BEFORE ADMINISTRATION
     Route: 048
     Dates: end: 20090705
  11. PROTECADIN [Concomitant]
     Route: 048
     Dates: start: 20090610
  12. OXYCONTIN [Concomitant]
     Route: 048
     Dates: start: 20090709, end: 20090808
  13. OXYCONTIN [Concomitant]
     Route: 048
     Dates: start: 20090706, end: 20090708
  14. OXINORM [Concomitant]
     Route: 048
     Dates: start: 20090708, end: 20090808
  15. OXINORM [Concomitant]
     Route: 048
     Dates: start: 20090706, end: 20090708

REACTIONS (3)
  - HEPATIC FUNCTION ABNORMAL [None]
  - HEPATIC NEOPLASM MALIGNANT [None]
  - PYREXIA [None]
